FAERS Safety Report 9970000 (Version 1)
Quarter: 2014Q1

REPORT INFORMATION
  Report Type: Spontaneous
  Country: US (occurrence: None)
  Receive Date: 20140131
  Receipt Date: 20140131
  Transmission Date: 20141002
  Serious: Yes (Hospitalization)
  Sender: FDA-Public Use
  Company Number: 087606

PATIENT
  Sex: Female
  Weight: 48 kg

DRUGS (6)
  1. KEPPRA [Suspect]
     Indication: CONVULSION
     Dosage: 2000 MG STRENGTH:  500 MG, 4/DAILY
  2. COZAAR [Concomitant]
  3. B12 [Concomitant]
  4. MODAFINIL [Concomitant]
  5. PLAVIX [Concomitant]
  6. NEXIUM /01479302/ [Concomitant]

REACTIONS (3)
  - Dizziness [None]
  - Malaise [None]
  - Inappropriate schedule of drug administration [None]
